FAERS Safety Report 14403057 (Version 1)
Quarter: 2018Q1

REPORT INFORMATION
  Report Type: Spontaneous
  Country: US (occurrence: US)
  Receive Date: 20180117
  Receipt Date: 20180117
  Transmission Date: 20180509
  Serious: Yes (Disabling)
  Sender: FDA-Public Use
  Company Number: None

PATIENT
  Age: 63 Year
  Sex: Female
  Weight: 80.74 kg

DRUGS (11)
  1. HYDROXYCHLOROQUINE (PLAQUENIL GENERIC) 200MG [Suspect]
     Active Substance: HYDROXYCHLOROQUINE
     Indication: LICHEN PLANUS
     Dosage: 1 PILL FOR 2 WKS THEN 1AM 1 PM, AM + PM WITH FOOD, MOUTH
     Route: 048
  2. CALCIUM CITRATE [Concomitant]
     Active Substance: CALCIUM CITRATE
  3. RENEW LIFE CLEANSE MORE [Concomitant]
  4. VITAMIN D3 [Concomitant]
     Active Substance: CHOLECALCIFEROL
  5. ESTER VIT C [Concomitant]
  6. ARMOUR THYROID [Concomitant]
     Active Substance: THYROID, PORCINE
  7. SELENIUM [Concomitant]
     Active Substance: SELENIUM
  8. VITAMIN B COMPLEX [Concomitant]
     Active Substance: CYANOCOBALAMIN\DEXPANTHENOL\NIACINAMIDE\PYRIDOXINE HYDROCHLORIDE\RIBOFLAVIN 5^-PHOSPHATE SODIUM\THIAMINE HYDROCHLORIDE\VITAMIN B COMPLEX
  9. FISH OIL [Concomitant]
     Active Substance: FISH OIL
  10. MAGNESIUM [Concomitant]
     Active Substance: MAGNESIUM
  11. UBRAVINOL [Concomitant]

REACTIONS (3)
  - Tinnitus [None]
  - Deafness [None]
  - Dizziness [None]

NARRATIVE: CASE EVENT DATE: 20171201
